FAERS Safety Report 21706601 (Version 1)
Quarter: 2022Q4

REPORT INFORMATION
  Report Type: Spontaneous
  Country: CH (occurrence: CH)
  Receive Date: 20221209
  Receipt Date: 20221209
  Transmission Date: 20230113
  Serious: Yes (Life-Threatening, Hospitalization)
  Sender: FDA-Public Use
  Company Number: CH-NAPPMUNDI-GBR-2022-0103594

PATIENT
  Age: 24 Year
  Sex: Female
  Weight: 59 kg

DRUGS (4)
  1. PALLADONE [Interacting]
     Active Substance: HYDROMORPHONE HYDROCHLORIDE
     Indication: Analgesic therapy
     Dosage: UNK
     Route: 058
     Dates: start: 20221016
  2. KETAMINE [Suspect]
     Active Substance: KETAMINE
     Indication: Analgesic therapy
     Dosage: UNK
     Route: 065
     Dates: start: 20221017, end: 20221017
  3. DURAGESIC [Interacting]
     Active Substance: FENTANYL
     Indication: Analgesic therapy
     Dosage: IV FROM 07.10.2022 TO 12.10.2022 AND SINCE 13.10.2022 DERMAL PATCH (50 ?G/72H )
     Route: 065
     Dates: start: 20221007, end: 20221012
  4. DURAGESIC [Interacting]
     Active Substance: FENTANYL
     Dosage: UNK
     Route: 065
     Dates: start: 20221013

REACTIONS (3)
  - Accidental overdose [Recovered/Resolved]
  - Dissociative disorder [Recovered/Resolved]
  - Coma [Recovered/Resolved]

NARRATIVE: CASE EVENT DATE: 20221017
